FAERS Safety Report 22067993 (Version 1)
Quarter: 2023Q1

REPORT INFORMATION
  Report Type: Spontaneous
  Country: FR (occurrence: FR)
  Receive Date: 20230307
  Receipt Date: 20230307
  Transmission Date: 20230418
  Serious: Yes (Hospitalization, Other)
  Sender: FDA-Public Use
  Company Number: FR-AFSSAPS-GR2023000176

PATIENT
  Age: 20 Year
  Sex: Female
  Weight: 62 kg

DRUGS (5)
  1. QUETIAPINE [Suspect]
     Active Substance: QUETIAPINE
     Indication: Product used for unknown indication
     Dosage: 600 MILLIGRAM (100 MG/J X6)
     Route: 048
     Dates: start: 20230208, end: 20230208
  2. TRAMADOL [Suspect]
     Active Substance: TRAMADOL
     Indication: Product used for unknown indication
     Dosage: 1200 MILLIGRAM (200 MG/J X6)
     Route: 048
     Dates: start: 20230208, end: 20230208
  3. VENLAFAXINE [Suspect]
     Active Substance: VENLAFAXINE HYDROCHLORIDE
     Indication: Intentional overdose
     Dosage: 450 MILLIGRAM (75 MG/J X6)
     Route: 048
     Dates: start: 20230208, end: 20230208
  4. OXAZEPAM [Suspect]
     Active Substance: OXAZEPAM
     Indication: Product used for unknown indication
     Dosage: 1050 MILLIGRAM (175 MG/J X6)
     Route: 048
     Dates: start: 20230208, end: 20230208
  5. LEVOMEPROMAZINE [Suspect]
     Active Substance: LEVOMEPROMAZINE
     Indication: Product used for unknown indication
     Dosage: 270 MILLIGRAM (45 MG/J X6)
     Route: 048
     Dates: start: 20230208, end: 20230208

REACTIONS (3)
  - Poisoning deliberate [Recovered/Resolved]
  - Somnolence [Recovered/Resolved]
  - Myoclonus [Recovered/Resolved]

NARRATIVE: CASE EVENT DATE: 20230208
